FAERS Safety Report 16949597 (Version 2)
Quarter: 2019Q4

REPORT INFORMATION
  Report Type: Report from Study
  Country: None (occurrence: US)
  Receive Date: 20191023
  Receipt Date: 20191220
  Transmission Date: 20200122
  Serious: Yes (Other)
  Sender: FDA-Public Use
  Company Number: US-INSMED, INC.-US-INS-19-03388

PATIENT
  Sex: Female

DRUGS (2)
  1. LAMIRA NEBULIZER SYSTEM [Suspect]
     Active Substance: DEVICE
  2. ARIKAYCE [Suspect]
     Active Substance: AMIKACIN
     Indication: PRODUCT USED FOR UNKNOWN INDICATION
     Route: 055
     Dates: start: 20190207, end: 2019

REACTIONS (5)
  - Underweight [Unknown]
  - Weight decreased [Unknown]
  - Alopecia [Unknown]
  - Nail discolouration [Unknown]
  - Decreased appetite [Unknown]

NARRATIVE: CASE EVENT DATE: 2019
